FAERS Safety Report 8020596-0 (Version None)
Quarter: 2012Q1

REPORT INFORMATION
  Report Type: 
  Country: None (occurrence: None)
  Receive Date: 20120103
  Receipt Date: 20111227
  Transmission Date: 20120608
  Serious: Yes (Hospitalization)
  Sender: FDA-Public Use
  Company Number: US-ASTRAZENECA-2011SE39151

PATIENT
  Age: 66 Year
  Sex: Male

DRUGS (3)
  1. PROPULSID [Concomitant]
  2. PRILOSEC [Suspect]
     Route: 048
  3. NEXIUM [Suspect]
     Route: 048

REACTIONS (10)
  - MALAISE [None]
  - DRUG DOSE OMISSION [None]
  - FOOD POISONING [None]
  - WRONG TECHNIQUE IN DRUG USAGE PROCESS [None]
  - DIABETES MELLITUS [None]
  - VOMITING [None]
  - ABDOMINAL PAIN [None]
  - VENOUS OCCLUSION [None]
  - DYSPEPSIA [None]
  - DRUG INEFFECTIVE [None]
